FAERS Safety Report 6716210-4 (Version None)
Quarter: 2010Q2

REPORT INFORMATION
  Report Type: 
  Country: None (occurrence: None)
  Receive Date: 20100507
  Receipt Date: 20100428
  Transmission Date: 20101027
  Serious: Yes (Other)
  Sender: FDA-Public Use
  Company Number: US-JNJFOC-20100201809

PATIENT
  Age: 43 Year
  Sex: Male

DRUGS (3)
  1. INVEGA [Suspect]
     Indication: DRUG USE FOR UNKNOWN INDICATION
     Route: 048
  2. STEROID INJECTION NOS [Suspect]
     Indication: BACK DISORDER
     Route: 030
  3. ORAL STEROIDS [Suspect]
     Indication: BACK DISORDER
     Route: 048

REACTIONS (4)
  - AGITATION [None]
  - AKATHISIA [None]
  - PSYCHOTIC DISORDER [None]
  - RESTLESSNESS [None]
